FAERS Safety Report 17431142 (Version 1)
Quarter: 2020Q1

REPORT INFORMATION
  Report Type: Spontaneous
  Country: US (occurrence: US)
  Receive Date: 20200217
  Receipt Date: 20200217
  Transmission Date: 20200409
  Serious: Yes (Life-Threatening, Hospitalization)
  Sender: FDA-Public Use
  Company Number: None

PATIENT
  Age: 74 Year
  Sex: Male
  Weight: 90 kg

DRUGS (1)
  1. OFEV [Suspect]
     Active Substance: NINTEDANIB
     Indication: IDIOPATHIC PULMONARY FIBROSIS
     Route: 048
     Dates: start: 20191109, end: 20200109

REACTIONS (7)
  - Electrolyte imbalance [None]
  - Diabetic coma [None]
  - Diarrhoea [None]
  - Blood potassium increased [None]
  - Dehydration [None]
  - Acute kidney injury [None]
  - Product complaint [None]

NARRATIVE: CASE EVENT DATE: 20200127
